FAERS Safety Report 5832469-X (Version None)
Quarter: 2008Q3

REPORT INFORMATION
  Report Type: 
  Country: None (occurrence: None)
  Receive Date: 20080804
  Receipt Date: 20080723
  Transmission Date: 20090109
  Serious: Yes (Death, Hospitalization, Other)
  Sender: FDA-Public Use
  Company Number: GB-ROCHE-572601

PATIENT
  Sex: Female

DRUGS (10)
  1. CELLCEPT [Suspect]
     Indication: LIVER TRANSPLANT
     Route: 048
     Dates: start: 19950101, end: 20080701
  2. CELLCEPT [Suspect]
     Route: 042
  3. VALPROATE SODIUM [Concomitant]
     Indication: EPILEPSY
     Route: 048
     Dates: end: 20080707
  4. WARFARIN SODIUM [Concomitant]
     Dosage: DOSE REPORTED AS ^AS PER INR^
     Route: 048
  5. DILTIAZEM HCL [Concomitant]
     Route: 048
     Dates: end: 20080630
  6. CALCICHEW D3 FORTE [Concomitant]
     Route: 048
     Dates: end: 20080625
  7. RISEDRONATE SODIUM [Concomitant]
  8. PANTOPRAZOLE SODIUM [Concomitant]
  9. NICORANDIL [Concomitant]
     Dosage: FREQUENCY REPORTED AS ^MANE^
  10. TRAMADOL HCL [Concomitant]

REACTIONS (4)
  - CONVULSION [None]
  - DEATH [None]
  - DYSPHAGIA [None]
  - GLIOBLASTOMA [None]
